FAERS Safety Report 14163044 (Version 11)
Quarter: 2018Q2

REPORT INFORMATION
  Report Type: Report from Study
  Country: PL (occurrence: PL)
  Receive Date: 20171106
  Receipt Date: 20180531
  Transmission Date: 20180711
  Serious: Yes (Hospitalization, Other)
  Sender: FDA-Public Use
  Company Number: PL-TEVA-820693ISR

PATIENT
  Age: 61 Year
  Sex: Male

DRUGS (9)
  1. DEXAMETHASONE. [Suspect]
     Active Substance: DEXAMETHASONE
     Indication: PRODUCT USED FOR UNKNOWN INDICATION
     Route: 065
  2. ATORVASTATIN [Suspect]
     Active Substance: ATORVASTATIN
     Indication: SPINAL CORD ISCHAEMIA
     Route: 065
  3. RAMIPRIL. [Suspect]
     Active Substance: RAMIPRIL
     Indication: SPINAL CORD ISCHAEMIA
     Route: 048
  4. DEXAVEN [Suspect]
     Active Substance: DEXAMETHASONE
     Indication: SPINAL CORD ISCHAEMIA
     Route: 042
  5. ENOXAPARIN [Suspect]
     Active Substance: ENOXAPARIN
     Indication: SPINAL CORD ISCHAEMIA
     Route: 065
  6. ASPIRIN. [Suspect]
     Active Substance: ASPIRIN
     Indication: SPINAL CORD ISCHAEMIA
     Route: 065
  7. TORASEMIDE [Suspect]
     Active Substance: TORSEMIDE
     Indication: SPINAL CORD ISCHAEMIA
     Route: 065
  8. MANNITOL. [Suspect]
     Active Substance: MANNITOL
     Indication: SPINAL CORD ISCHAEMIA
     Route: 042
  9. ALTEPLASE RECOMBINANT [Concomitant]
     Indication: PRODUCT USED FOR UNKNOWN INDICATION
     Dosage: DOSE OF 0.9MG/KG, 90 MINUTES SINCE THE ONSET OF SYMPTOMS
     Route: 042

REACTIONS (2)
  - Paralysis [Recovering/Resolving]
  - Condition aggravated [Unknown]

NARRATIVE: CASE EVENT DATE: 20171025
